FAERS Safety Report 17160964 (Version 2)
Quarter: 2019Q4

REPORT INFORMATION
  Report Type: Spontaneous
  Country: IT (occurrence: IT)
  Receive Date: 20191216
  Receipt Date: 20191220
  Transmission Date: 20200122
  Serious: Yes (Hospitalization)
  Sender: FDA-Public Use
  Company Number: IT-PFIZER INC-2019536184

PATIENT
  Age: 81 Year
  Sex: Female

DRUGS (5)
  1. HYDROCHLOROTHIAZIDE/QUINAPRIL HYDROCHLORIDE [Suspect]
     Active Substance: HYDROCHLOROTHIAZIDE\QUINAPRIL HYDROCHLORIDE
     Indication: HYPERTENSION
     Dosage: UNK
  2. ATORVASTATIN CALCIUM. [Suspect]
     Active Substance: ATORVASTATIN CALCIUM
     Indication: TRANSIENT ISCHAEMIC ATTACK
     Dosage: 10 MG, 1X/DAY
  3. DIPYRIDAMOLE. [Suspect]
     Active Substance: DIPYRIDAMOLE
     Indication: CHEST PAIN
     Dosage: UNK (0.84 MG/KG IN 6 MINUTES)
     Route: 042
  4. METFORMIN [Suspect]
     Active Substance: METFORMIN HYDROCHLORIDE
     Indication: DIABETES MELLITUS
     Dosage: 1500 MG, 1X/DAY (500 MG, TID)
  5. ASPIRIN. [Suspect]
     Active Substance: ASPIRIN
     Indication: TRANSIENT ISCHAEMIC ATTACK
     Dosage: 100 MG, 1X/DAY

REACTIONS (4)
  - Headache [Unknown]
  - Hypertension [Unknown]
  - Stress cardiomyopathy [Unknown]
  - Chest pain [Unknown]
